FAERS Safety Report 6793309-8 (Version None)
Quarter: 2010Q2

REPORT INFORMATION
  Report Type: 
  Country: None (occurrence: None)
  Receive Date: 20100624
  Receipt Date: 20100209
  Transmission Date: 20101027
  Serious: Yes (Other)
  Sender: FDA-Public Use
  Company Number: US-MYLANLABS-2009S1019902

PATIENT
  Age: 41 Year
  Sex: Male
  Weight: 60.78 kg

DRUGS (17)
  1. CLOZAPINE [Suspect]
     Indication: SCHIZOPHRENIA, PARANOID TYPE
     Route: 048
     Dates: start: 20090521, end: 20091203
  2. CLOZAPINE [Suspect]
     Route: 048
     Dates: start: 20090521, end: 20091203
  3. CLOZAPINE [Suspect]
     Route: 048
     Dates: start: 20090521, end: 20091203
  4. CLONAZEPAM [Concomitant]
     Route: 048
  5. SEROQUEL [Concomitant]
  6. SEROQUEL [Concomitant]
  7. ABILIFY [Concomitant]
  8. BENZTROPINE MESYLATE [Concomitant]
     Route: 048
  9. DOCUSATE [Concomitant]
     Route: 048
  10. VITAMIN E [Concomitant]
  11. DIVALPROEX SODIUM [Concomitant]
  12. METFORMIN HCL [Concomitant]
  13. HALOPERIDOL [Concomitant]
     Route: 048
  14. SEROQUEL [Concomitant]
  15. SEROQUEL [Concomitant]
  16. CLONAZEPAM [Concomitant]
     Route: 048
  17. HALOPERIDOL [Concomitant]
     Route: 048

REACTIONS (3)
  - DRUG HYPERSENSITIVITY [None]
  - GRANULOCYTOPENIA [None]
  - LEUKOPENIA [None]
